FAERS Safety Report 25056936 (Version 1)
Quarter: 2025Q1

REPORT INFORMATION
  Report Type: Spontaneous
  Country: US (occurrence: US)
  Receive Date: 20250310
  Receipt Date: 20250310
  Transmission Date: 20250409
  Serious: No
  Sender: TARO
  Company Number: US-TARO PHARMACEUTICALS USA INC.-2024TAR02540

PATIENT
  Sex: Female

DRUGS (1)
  1. TERCONAZOLE [Suspect]
     Active Substance: TERCONAZOLE
     Indication: Product used for unknown indication
     Route: 067
     Dates: start: 20241126

REACTIONS (2)
  - Product container issue [Unknown]
  - Underdose [Unknown]

NARRATIVE: CASE EVENT DATE: 20241126
